FAERS Safety Report 22592983 (Version 1)
Quarter: 2023Q2

REPORT INFORMATION
  Report Type: Report from Study
  Country: FR (occurrence: FR)
  Receive Date: 20230613
  Receipt Date: 20230613
  Transmission Date: 20230722
  Serious: Yes (Hospitalization)
  Sender: FDA-Public Use
  Company Number: FR-SERVIER-S23005758

PATIENT
  Age: 67 Year
  Sex: Male
  Weight: 53 kg

DRUGS (3)
  1. ONIVYDE [Suspect]
     Active Substance: IRINOTECAN HYDROCHLORIDE
     Indication: Oesophageal squamous cell carcinoma metastatic
     Dosage: 116 MG
     Route: 042
     Dates: start: 20230405
  2. FLUOROURACIL [Suspect]
     Active Substance: FLUOROURACIL
     Indication: Oesophageal squamous cell carcinoma metastatic
     Dosage: 3960 MG, OTHER
     Dates: start: 20230405
  3. LEUCOVORIN [Suspect]
     Active Substance: LEUCOVORIN
     Indication: Oesophageal squamous cell carcinoma metastatic
     Dosage: 330 MG, OTHER
     Dates: start: 20230405

REACTIONS (2)
  - General physical health deterioration [Not Recovered/Not Resolved]
  - Renal failure [Not Recovered/Not Resolved]

NARRATIVE: CASE EVENT DATE: 20230522
